FAERS Safety Report 11514941 (Version 1)
Quarter: 2015Q3

REPORT INFORMATION
  Report Type: Spontaneous
  Country: PT (occurrence: PT)
  Receive Date: 20150916
  Receipt Date: 20150916
  Transmission Date: 20151125
  Serious: Yes (Other)
  Sender: FDA-Public Use
  Company Number: PT-TEVA-592446ISR

PATIENT
  Age: 51 Year
  Sex: Female

DRUGS (2)
  1. ANASTROZOL TEVA [Suspect]
     Active Substance: ANASTROZOLE
     Indication: BREAST CANCER
     Dosage: 1 MILLIGRAM DAILY;
     Route: 048
     Dates: start: 20141222, end: 20150720
  2. TAMOXIFENO [Concomitant]
     Route: 048
     Dates: start: 20110901, end: 20141222

REACTIONS (6)
  - Condition aggravated [Unknown]
  - Malaise [Unknown]
  - Arthralgia [Unknown]
  - Pain [Unknown]
  - Asthenia [Unknown]
  - Gait disturbance [Unknown]

NARRATIVE: CASE EVENT DATE: 20141222
